FAERS Safety Report 23636062 (Version 1)
Quarter: 2024Q1

REPORT INFORMATION
  Report Type: Spontaneous
  Country: PK (occurrence: PK)
  Receive Date: 20240315
  Receipt Date: 20240315
  Transmission Date: 20240409
  Serious: Yes (Hospitalization, Other)
  Sender: FDA-Public Use
  Company Number: PK-Accord-412271

PATIENT
  Age: 51 Year
  Sex: Female

DRUGS (4)
  1. FUROSEMIDE [Suspect]
     Active Substance: FUROSEMIDE
     Indication: Pleural effusion
     Dosage: 40 MG TWICE DAILY
     Route: 042
  2. SPIRONOLACTONE [Suspect]
     Active Substance: SPIRONOLACTONE
     Indication: Pleural effusion
     Dosage: 100MG TWICE DAILY
  3. SPIRONOLACTONE [Suspect]
     Active Substance: SPIRONOLACTONE
     Indication: Hepatic encephalopathy
     Dosage: 100MG TWICE DAILY
  4. FUROSEMIDE [Suspect]
     Active Substance: FUROSEMIDE
     Indication: Hepatic encephalopathy
     Dosage: 40 MG TWICE DAILY
     Route: 042

REACTIONS (4)
  - Hepatic encephalopathy [Unknown]
  - Hypovolaemia [Unknown]
  - Acute kidney injury [Unknown]
  - Treatment failure [Unknown]
